FAERS Safety Report 23677421 (Version 5)
Quarter: 2024Q2

REPORT INFORMATION
  Report Type: Spontaneous
  Country: CA (occurrence: CA)
  Receive Date: 20240327
  Receipt Date: 20240611
  Transmission Date: 20240716
  Serious: No
  Sender: FDA-Public Use
  Company Number: CA-PFIZER INC-202400023690

PATIENT
  Age: 23 Year
  Sex: Female

DRUGS (4)
  1. ABRILADA [Suspect]
     Active Substance: ADALIMUMAB-AFZB
     Indication: Juvenile idiopathic arthritis
     Dosage: 40 MG, WEEKLY
     Route: 058
     Dates: start: 20240303
  2. METHOTREXATE [Concomitant]
     Active Substance: METHOTREXATE
     Indication: Rheumatoid arthritis
     Dosage: 25 MG, WEEKLY
     Route: 058
     Dates: start: 2011
  3. MAXIDEX [Concomitant]
     Active Substance: DEXAMETHASONE
     Dosage: UNK, 3X/DAY
  4. MAXIDEX [Concomitant]
     Active Substance: DEXAMETHASONE
     Dosage: UNK, 2X/DAY

REACTIONS (5)
  - Malaise [Unknown]
  - Poor quality device used [Unknown]
  - Device issue [Unknown]
  - Injury associated with device [Unknown]
  - Off label use [Unknown]

NARRATIVE: CASE EVENT DATE: 20240301
